FAERS Safety Report 11245834 (Version 1)
Quarter: 2015Q3

REPORT INFORMATION
  Report Type: Report from Study
  Country: MX (occurrence: MX)
  Receive Date: 20150707
  Receipt Date: 20150707
  Transmission Date: 20151125
  Serious: Yes (Other)
  Sender: FDA-Public Use
  Company Number: MX-BIOMARINAP-MX-2015-106792

PATIENT
  Age: 2 Year
  Sex: Male

DRUGS (2)
  1. ALDURAZYME [Suspect]
     Active Substance: LARONIDASE
     Indication: MUCOPOLYSACCHARIDOSIS I
     Dosage: UNK, QW
     Route: 041
     Dates: end: 20150604
  2. ALDURAZYME [Suspect]
     Active Substance: LARONIDASE
     Dosage: UNK, QW
     Route: 041

REACTIONS (3)
  - Vomiting [Recovered/Resolved]
  - Pyrexia [Recovered/Resolved]
  - Gastric infection [Recovered/Resolved]

NARRATIVE: CASE EVENT DATE: 20150531
